FAERS Safety Report 10497498 (Version 1)
Quarter: 2014Q4

REPORT INFORMATION
  Report Type: Spontaneous
  Country: US (occurrence: None)
  Receive Date: 20141002
  Receipt Date: 20141002
  Transmission Date: 20150528
  Serious: Yes (Other)
  Sender: FDA-Public Use
  Company Number: 001807937A

PATIENT
  Age: 13 Year
  Sex: Female

DRUGS (2)
  1. X-OUT WASH-IN TREATMENT [Suspect]
     Active Substance: BENZOYL PEROXIDE
     Indication: ACNE
     Dosage: ONCE DAILY DERMAL
     Dates: start: 20140906
  2. INHALER FOR ASTHMA [Concomitant]

REACTIONS (3)
  - Asthma [None]
  - Swelling face [None]
  - Dyspnoea [None]

NARRATIVE: CASE EVENT DATE: 20140906
